FAERS Safety Report 9624725 (Version 1)
Quarter: 2013Q4

REPORT INFORMATION
  Report Type: Spontaneous
  Country: GB (occurrence: GB)
  Receive Date: 20131015
  Receipt Date: 20131015
  Transmission Date: 20140711
  Serious: Yes (Other)
  Sender: FDA-Public Use
  Company Number: GB-PFIZER INC-2011072489

PATIENT
  Sex: Male

DRUGS (2)
  1. METHOTREXATE SODIUM [Suspect]
  2. SULFASALAZINE [Suspect]

REACTIONS (3)
  - Hepatitis C [Recovered/Resolved]
  - Bone erosion [Unknown]
  - Seronegative arthritis [Unknown]
